FAERS Safety Report 7783052-0 (Version None)
Quarter: 2011Q3

REPORT INFORMATION
  Report Type: 
  Country: None (occurrence: None)
  Receive Date: 20110928
  Receipt Date: 20110923
  Transmission Date: 20111222
  Serious: No
  Sender: FDA-Public Use
  Company Number: US-PFIZER INC-2011038780

PATIENT
  Sex: Male

DRUGS (8)
  1. ZYPREXA [Concomitant]
     Dosage: 7.5 MG, UNK
  2. XANAX [Concomitant]
     Indication: HYPERTENSION
     Dosage: 0.25 MG, 3X/DAY
     Route: 048
  3. EFFEXOR XR [Suspect]
     Indication: PANIC DISORDER
     Dosage: 225 MG, 1X/DAY
     Dates: start: 20070101, end: 20110101
  4. ZYPREXA [Concomitant]
     Dosage: 5 MG, 1X/DAY
  5. EFFEXOR XR [Suspect]
     Dosage: UNK
  6. EFFEXOR XR [Suspect]
     Dosage: 150MG/DAY
     Dates: start: 20110101, end: 20110201
  7. EFFEXOR XR [Suspect]
     Dosage: 75MG/DAY
     Dates: start: 20110202, end: 20110801
  8. EFFEXOR [Suspect]
     Dosage: UNK
     Dates: start: 20060101

REACTIONS (5)
  - HOT FLUSH [None]
  - HYPERHIDROSIS [None]
  - BLOOD TRIGLYCERIDES DECREASED [None]
  - ERECTILE DYSFUNCTION [None]
  - ABNORMAL BEHAVIOUR [None]
